FAERS Safety Report 10797541 (Version 1)
Quarter: 2015Q1

REPORT INFORMATION
  Report Type: Report from Study
  Country: US (occurrence: US)
  Receive Date: 20150216
  Receipt Date: 20150216
  Transmission Date: 20150721
  Serious: Yes (Hospitalization)
  Sender: FDA-Public Use
  Company Number: US-MYLANLABS-2015M1004452

PATIENT

DRUGS (2)
  1. TOPIRAMATE. [Concomitant]
     Active Substance: TOPIRAMATE
     Route: 065
  2. LAMOTRIGINE. [Suspect]
     Active Substance: LAMOTRIGINE
     Dosage: DOUBLE DOSE FOR SEVERAL DAYS
     Route: 048

REACTIONS (5)
  - Confusional state [Recovered/Resolved]
  - Ataxia [Recovered/Resolved]
  - Incorrect dose administered [Recovered/Resolved]
  - Muscular weakness [Recovered/Resolved]
  - Toxicity to various agents [Recovered/Resolved]
